FAERS Safety Report 16241610 (Version 6)
Quarter: 2019Q4

REPORT INFORMATION
  Report Type: Spontaneous
  Country: FR (occurrence: FR)
  Receive Date: 20190426
  Receipt Date: 20191205
  Transmission Date: 20200122
  Serious: Yes (Hospitalization, Other)
  Sender: FDA-Public Use
  Company Number: FR-AUROBINDO-AUR-APL-2019-023063

PATIENT
  Age: 63 Year
  Sex: Female

DRUGS (13)
  1. RAMIPRIL. [Concomitant]
     Active Substance: RAMIPRIL
     Indication: HYPERTENSION
     Dosage: 1, ONCE A DAY, 2 QD
     Route: 048
     Dates: start: 201805
  2. NEURONTIN [Concomitant]
     Active Substance: GABAPENTIN
     Indication: TOXIC SKIN ERUPTION
     Dosage: 300 MILLIGRAM, ONCE A DAY
     Route: 048
     Dates: start: 20190205
  3. MACROGOL [Concomitant]
     Active Substance: POLYETHYLENE GLYCOLS
     Indication: PROPHYLAXIS
     Dosage: 1 UNK, PRN
     Route: 048
     Dates: start: 20190205
  4. BACTRIM [Suspect]
     Active Substance: SULFAMETHOXAZOLE\TRIMETHOPRIM
     Dosage: UNK UNK, ONCE A DAY (3 TID)
     Route: 042
     Dates: start: 20190204, end: 20190208
  5. PARACETAMOL [Concomitant]
     Active Substance: ACETAMINOPHEN
     Indication: PROPHYLAXIS
     Dosage: 1 GRAM, PRN
     Route: 048
     Dates: start: 20190205
  6. LANSOPRAZOLE. [Suspect]
     Active Substance: LANSOPRAZOLE
     Indication: ABDOMINAL PAIN UPPER
     Dosage: 60 MILLIGRAM, UNK
     Route: 065
  7. BACTRIM [Suspect]
     Active Substance: SULFAMETHOXAZOLE\TRIMETHOPRIM
     Indication: PRODUCT USED FOR UNKNOWN INDICATION
     Dosage: 3 DOSAGE FORM, ONCE A DAY,1 DF, 3X/DAY (Q8HR)
     Route: 042
     Dates: start: 20190131, end: 20190203
  8. SPARTALIZUMAB [Suspect]
     Active Substance: SPARTALIZUMAB
     Indication: NEOPLASM MALIGNANT
     Dosage: 300 MILLIGRAM, 3 WEEK
     Route: 042
     Dates: start: 20181011, end: 20181227
  9. PREDNISONE. [Concomitant]
     Active Substance: PREDNISONE
     Indication: PNEUMONIA
     Dosage: 80 MILLIGRAM, ONCE A DAY
     Route: 048
     Dates: start: 20190206
  10. LANSOPRAZOLE. [Suspect]
     Active Substance: LANSOPRAZOLE
     Indication: PROPHYLAXIS
     Dosage: 15 MILLIGRAM, ONCE A DAY (QD)
     Route: 048
     Dates: start: 20190205, end: 20190208
  11. BACTRIM [Suspect]
     Active Substance: SULFAMETHOXAZOLE\TRIMETHOPRIM
     Dosage: 1,3 TIMES A DAY
     Route: 042
     Dates: start: 20190131, end: 20190203
  12. GABAPENTIN. [Suspect]
     Active Substance: GABAPENTIN
     Indication: TOXIC SKIN ERUPTION
     Dosage: 100 MILLIGRAM, 3 TIMES A DAY (300 MG ONCE A DAY)
     Route: 048
     Dates: start: 20190205
  13. EFFEXOR [Concomitant]
     Active Substance: VENLAFAXINE HYDROCHLORIDE
     Indication: DEPRESSION
     Dosage: 38 MILLIGRAM, ONCE A DAY
     Route: 048
     Dates: start: 201707

REACTIONS (2)
  - Toxic skin eruption [Recovered/Resolved]
  - Urinary tract infection [Recovered/Resolved]

NARRATIVE: CASE EVENT DATE: 20190131
